FAERS Safety Report 10342628 (Version 2)
Quarter: 2015Q1

REPORT INFORMATION
  Report Type: Spontaneous
  Country: GB (occurrence: GB)
  Receive Date: 20140725
  Receipt Date: 20150123
  Transmission Date: 20150720
  Serious: Yes (Other)
  Sender: FDA-Public Use
  Company Number: GB-ACTAVIS-2014-15916

PATIENT
  Age: 38 Year
  Sex: Male
  Weight: 76 kg

DRUGS (7)
  1. QUETIAPINE (UNKNOWN) [Suspect]
     Active Substance: QUETIAPINE
     Dosage: 25MG, TID. INITIALLY 25MG THREE TIMES A DAY. HAD BEEN ON DOSES UP TO 600MG A DAY DURING THAT TIME
     Route: 048
     Dates: start: 20131105
  2. MIRTAZAPINE. [Concomitant]
     Active Substance: MIRTAZAPINE
     Indication: DEPRESSION
     Dosage: 45 MG, UNKNOWN
     Route: 065
  3. CITALOPRAM [Concomitant]
     Active Substance: CITALOPRAM HYDROBROMIDE
     Indication: PRODUCT USED FOR UNKNOWN INDICATION
     Dosage: 40 MG, UNKNOWN
     Route: 065
  4. QUETIAPINE (UNKNOWN) [Suspect]
     Active Substance: QUETIAPINE
     Indication: DEPRESSION
     Dosage: 400 MG, DAILY. DOSE AT TIME OF REACTION.
     Route: 048
  5. QUETIAPINE (UNKNOWN) [Suspect]
     Active Substance: QUETIAPINE
     Dosage: 600 MG, DAILY.INITIALLY 25MG THREE TIMES A DAY. HAD BEEN ON DOSES UP TO 600MG A DAY DURING THAT TIME
     Route: 048
  6. QUETIAPINE (UNKNOWN) [Suspect]
     Active Substance: QUETIAPINE
     Dosage: 200 MG, QHS.INITIALLY 25MG THREE TIMES A DAY. HAD BEEN ON DOSES UP TO 600MG A DAY DURING THAT TIME
     Route: 048
     Dates: end: 20140630
  7. SERTRALINE [Concomitant]
     Active Substance: SERTRALINE HYDROCHLORIDE
     Indication: DEPRESSION
     Dosage: 100 MG, UNKNOWN
     Route: 065

REACTIONS (4)
  - Pain in extremity [Unknown]
  - Tremor [Unknown]
  - Muscle spasms [Unknown]
  - Pain [Unknown]
